FAERS Safety Report 18475163 (Version 1)
Quarter: 2020Q4

REPORT INFORMATION
  Report Type: Spontaneous
  Country: US (occurrence: US)
  Receive Date: 20201106
  Receipt Date: 20201106
  Transmission Date: 20210114
  Serious: No
  Sender: FDA-Public Use
  Company Number: US-009507513-2010USA011226

PATIENT
  Age: 20 Year
  Sex: Female

DRUGS (1)
  1. NEXPLANON [Suspect]
     Active Substance: ETONOGESTREL
     Indication: CONTRACEPTION
     Dosage: 68 MILLIGRAM, IMPLANT
     Route: 059
     Dates: start: 2018

REACTIONS (4)
  - Therapeutic response unexpected [Unknown]
  - Mood swings [Unknown]
  - Depression [Unknown]
  - Menorrhagia [Unknown]

NARRATIVE: CASE EVENT DATE: 202007
